FAERS Safety Report 18564827 (Version 1)
Quarter: 2020Q4

REPORT INFORMATION
  Report Type: Spontaneous
  Country: US (occurrence: US)
  Receive Date: 20201201
  Receipt Date: 20201201
  Transmission Date: 20210114
  Serious: Yes (Other)
  Sender: FDA-Public Use
  Company Number: US-PFIZER INC-2020468517

PATIENT
  Age: 13 Year
  Sex: Female
  Weight: 49.9 kg

DRUGS (2)
  1. LEVEMIR [Concomitant]
     Active Substance: INSULIN DETEMIR
     Indication: TYPE 1 DIABETES MELLITUS
     Dosage: 10 IU, 1X/DAY
     Dates: start: 201802, end: 20201117
  2. DESVENLAFAXINE SUCCINATE MONOHYDRATE [Suspect]
     Active Substance: DESVENLAFAXINE SUCCINATE
     Indication: ANXIETY
     Dosage: 25 MG
     Route: 048
     Dates: start: 2018, end: 2019

REACTIONS (4)
  - Type 1 diabetes mellitus [Unknown]
  - Drug ineffective [Unknown]
  - Off label use [Unknown]
  - Gastric disorder [Unknown]

NARRATIVE: CASE EVENT DATE: 2018
